FAERS Safety Report 6106909-5 (Version None)
Quarter: 2009Q1

REPORT INFORMATION
  Report Type: 
  Country: None (occurrence: None)
  Receive Date: 20090303
  Receipt Date: 20090216
  Transmission Date: 20090719
  Serious: Yes (Other)
  Sender: FDA-Public Use
  Company Number: TPH-00049

PATIENT
  Age: 19 Year
  Sex: Female

DRUGS (3)
  1. LEVONORGESTREL AND ETHINYL ESTRADIOL [Suspect]
     Indication: ORAL CONTRACEPTION
     Dosage: ORAL
     Route: 048
     Dates: start: 19990101, end: 20080401
  2. DORFLEX [Concomitant]
  3. NATIVIT (MULTIVITAMIN) [Concomitant]

REACTIONS (16)
  - ABDOMINAL PAIN [None]
  - CAESAREAN SECTION [None]
  - DIARRHOEA [None]
  - DRUG EXPOSURE DURING PREGNANCY [None]
  - DYSPEPSIA [None]
  - FEMALE STERILISATION [None]
  - HYPOMENORRHOEA [None]
  - INAPPROPRIATE SCHEDULE OF DRUG ADMINISTRATION [None]
  - MENSTRUAL DISORDER [None]
  - MUSCLE SPASMS [None]
  - NAUSEA [None]
  - PREGNANCY ON ORAL CONTRACEPTIVE [None]
  - PREMATURE SEPARATION OF PLACENTA [None]
  - SWELLING [None]
  - VOMITING [None]
  - WEIGHT INCREASED [None]
